FAERS Safety Report 14067898 (Version 2)
Quarter: 2018Q3

REPORT INFORMATION
  Report Type: Report from Study
  Country: CA (occurrence: CA)
  Receive Date: 20171010
  Receipt Date: 20180823
  Transmission Date: 20181010
  Serious: Yes (Congenital Anomaly)
  Sender: FDA-Public Use
  Company Number: CA-ASTRAZENECA-2016SF28216

PATIENT
  Sex: Male
  Weight: 2.2 kg

DRUGS (1)
  1. SYMBICORT [Suspect]
     Active Substance: BUDESONIDE\FORMOTEROL FUMARATE DIHYDRATE
     Indication: ASTHMA
     Dosage: 160/4.5 UG PRN
     Route: 064
     Dates: start: 20150323, end: 20151105

REACTIONS (2)
  - Premature baby [Unknown]
  - Foetal growth restriction [Recovered/Resolved]
